FAERS Safety Report 20729676 (Version 1)
Quarter: 2022Q2

REPORT INFORMATION
  Report Type: Spontaneous
  Country: US (occurrence: US)
  Receive Date: 20220420
  Receipt Date: 20220420
  Transmission Date: 20220721
  Serious: No
  Sender: FDA-Public Use
  Company Number: US-Accord-249148

PATIENT
  Sex: Female
  Weight: 58.51 kg

DRUGS (1)
  1. OXYBUTYNIN [Suspect]
     Active Substance: OXYBUTYNIN
     Indication: Hypertonic bladder
     Dosage: DOSE: 10MG TABLET ONE TABLET DAILY AT BEDTIME
     Route: 048

REACTIONS (1)
  - Drug ineffective [Not Recovered/Not Resolved]
